FAERS Safety Report 4680134-7 (Version None)
Quarter: 2005Q2

REPORT INFORMATION
  Report Type: 
  Country: None (occurrence: None)
  Receive Date: 20050602
  Receipt Date: 20050518
  Transmission Date: 20051028
  Serious: Yes (Other)
  Sender: FDA-Public Use
  Company Number: BR-JNJFOC-20050600463

PATIENT
  Age: 24 Year
  Sex: Female

DRUGS (10)
  1. IMOSEC [Suspect]
     Indication: DRUG USE FOR UNKNOWN INDICATION
  2. PARACETAMOL [Suspect]
     Indication: DRUG USE FOR UNKNOWN INDICATION
  3. ACETYLSALICYLIC [Suspect]
     Indication: DRUG USE FOR UNKNOWN INDICATION
  4. CARISOPRODOL [Suspect]
     Indication: DRUG USE FOR UNKNOWN INDICATION
  5. DICLOFENAC [Suspect]
     Indication: DRUG USE FOR UNKNOWN INDICATION
  6. EPINEPHRINE [Suspect]
     Indication: DRUG USE FOR UNKNOWN INDICATION
  7. AMOXICILINA [Suspect]
     Indication: DRUG USE FOR UNKNOWN INDICATION
  8. PASSIFLORA [Suspect]
     Indication: DRUG USE FOR UNKNOWN INDICATION
  9. PROPRANOLOL [Suspect]
     Indication: DRUG USE FOR UNKNOWN INDICATION
  10. SCOPOLAMINE [Suspect]
     Indication: DRUG USE FOR UNKNOWN INDICATION

REACTIONS (2)
  - MULTIPLE DRUG OVERDOSE [None]
  - SUICIDE ATTEMPT [None]
